FAERS Safety Report 17648958 (Version 3)
Quarter: 2020Q2

REPORT INFORMATION
  Report Type: Spontaneous
  Country: US (occurrence: US)
  Receive Date: 20200408
  Receipt Date: 20200422
  Transmission Date: 20200713
  Serious: No
  Sender: FDA-Public Use
  Company Number: NVSC2020US093683

PATIENT
  Age: 71 Year
  Sex: Female

DRUGS (3)
  1. ELIQUIS [Concomitant]
     Active Substance: APIXABAN
     Indication: PRODUCT USED FOR UNKNOWN INDICATION
     Dosage: UNK
     Route: 065
  2. LETROZOLE. [Concomitant]
     Active Substance: LETROZOLE
     Indication: PRODUCT USED FOR UNKNOWN INDICATION
     Dosage: UNK
     Route: 065
  3. PIQRAY [Suspect]
     Active Substance: ALPELISIB
     Indication: CHRONIC MYELOID LEUKAEMIA
     Dosage: 2 DF, QD (AFTER EVENING MEAL)
     Route: 065
     Dates: start: 20200328

REACTIONS (5)
  - Decreased appetite [Unknown]
  - Fatigue [Unknown]
  - Diarrhoea [Unknown]
  - Faeces discoloured [Unknown]
  - Ageusia [Unknown]

NARRATIVE: CASE EVENT DATE: 20200404
